FAERS Safety Report 21382645 (Version 1)
Quarter: 2022Q3

REPORT INFORMATION
  Report Type: Other
  Country: US (occurrence: None)
  Receive Date: 20220927
  Receipt Date: 20220927
  Transmission Date: 20221026
  Serious: Yes (Other)
  Sender: FDA-Public Use
  Company Number: US-ROCHE-3183011

PATIENT
  Age: 56 Year
  Sex: Female

DRUGS (1)
  1. VISMODEGIB [Suspect]
     Active Substance: VISMODEGIB
     Indication: Basal cell carcinoma
     Dosage: 2-WEEKS ON, 2-WEEKS OFF SCHEDULE
     Route: 065

REACTIONS (3)
  - Metastatic squamous cell carcinoma [Unknown]
  - Disease progression [Unknown]
  - Drug ineffective [Unknown]
